FAERS Safety Report 8771692 (Version 2)
Quarter: 2014Q1

REPORT INFORMATION
  Report Type: Report from Study
  Country: IT (occurrence: IT)
  Receive Date: 20120905
  Receipt Date: 20140131
  Transmission Date: 20141002
  Serious: Yes (Other)
  Sender: FDA-Public Use
  Company Number: IT-ROCHE-1112048

PATIENT
  Age: 66 Year
  Sex: Female
  Weight: 60 kg

DRUGS (13)
  1. TOCILIZUMAB [Suspect]
     Indication: RHEUMATOID ARTHRITIS
     Route: 042
     Dates: start: 20110801
  2. TOCILIZUMAB [Suspect]
     Route: 042
     Dates: start: 20120306
  3. TOCILIZUMAB [Suspect]
     Route: 042
     Dates: start: 20120403
  4. TOCILIZUMAB [Suspect]
     Route: 042
     Dates: start: 20120508
  5. TOCILIZUMAB [Suspect]
     Route: 042
     Dates: start: 20120612, end: 20120612
  6. DELTACORTENE [Concomitant]
     Indication: RHEUMATOID ARTHRITIS
     Route: 065
     Dates: start: 1998
  7. CRESTOR [Concomitant]
     Indication: HYPERCHOLESTEROLAEMIA
     Route: 048
  8. LIMPIDEX [Concomitant]
     Route: 065
  9. PROCAPTAN [Concomitant]
     Indication: HYPERTENSION
     Route: 065
  10. CONGESCOR [Concomitant]
     Indication: HYPERTENSION
     Route: 048
  11. DIAMICRON [Concomitant]
     Indication: DIABETES MELLITUS
     Route: 048
  12. SEREUPIN [Concomitant]
     Route: 065
  13. TAVOR (ITALY) [Concomitant]
     Indication: DEPRESSION
     Route: 048

REACTIONS (1)
  - Basal cell carcinoma [Recovered/Resolved]
